FAERS Safety Report 4944511-9 (Version None)
Quarter: 2006Q1

REPORT INFORMATION
  Report Type: 
  Country: None (occurrence: None)
  Receive Date: 20060315
  Receipt Date: 20060308
  Transmission Date: 20060701
  Serious: Yes (Other)
  Sender: FDA-Public Use
  Company Number: FR-SANOFI-SYNTHELABO-A02200600623

PATIENT
  Sex: Male

DRUGS (1)
  1. ELOXATIN [Suspect]
     Indication: AMNESTIC DISORDER
     Route: 042
     Dates: start: 20060101, end: 20060101

REACTIONS (4)
  - HYPERSENSITIVITY [None]
  - LARYNGOSPASM [None]
  - RASH [None]
  - URTICARIA [None]
